FAERS Safety Report 14250154 (Version 5)
Quarter: 2018Q1

REPORT INFORMATION
  Report Type: Spontaneous
  Country: DE (occurrence: DE)
  Receive Date: 20171205
  Receipt Date: 20180208
  Transmission Date: 20180508
  Serious: Yes (Death, Hospitalization, Other)
  Sender: FDA-Public Use
  Company Number: DE-TORRENT-00007363

PATIENT
  Age: 78 Year
  Sex: Male

DRUGS (5)
  1. DRONABINOL. [Suspect]
     Active Substance: DRONABINOL
     Indication: DEMENTIA WITH LEWY BODIES
     Dosage: 2.5 UP TO 15 MG/D^2
     Route: 065
  2. PAROXETINE. [Suspect]
     Active Substance: PAROXETINE
     Indication: DEMENTIA WITH LEWY BODIES
     Dates: start: 2017
  3. DEXTROMETHORPHAN [Suspect]
     Active Substance: DEXTROMETHORPHAN
     Indication: DEMENTIA WITH LEWY BODIES
     Route: 065
     Dates: start: 2017
  4. FLUPENTIXOL [Suspect]
     Active Substance: FLUPENTIXOL
     Indication: DEMENTIA WITH LEWY BODIES
     Route: 048
  5. QUETIAPINE. [Suspect]
     Active Substance: QUETIAPINE
     Indication: DEMENTIA WITH LEWY BODIES
     Route: 065
     Dates: start: 2016

REACTIONS (8)
  - Hangover [Recovering/Resolving]
  - Aggression [Recovering/Resolving]
  - Agitation [Unknown]
  - Sleep disorder [Recovering/Resolving]
  - Disorientation [Unknown]
  - Completed suicide [Fatal]
  - Withdrawal syndrome [Recovering/Resolving]
  - Off label use [Unknown]

NARRATIVE: CASE EVENT DATE: 2017
